FAERS Safety Report 9799445 (Version 4)
Quarter: 2014Q2

REPORT INFORMATION
  Report Type: Report from Study
  Country: US (occurrence: US)
  Receive Date: 20140106
  Receipt Date: 20140407
  Transmission Date: 20141212
  Serious: Yes (Death, Hospitalization)
  Sender: FDA-Public Use
  Company Number: US-ACTELION-A-US2013-93107

PATIENT
  Age: 82 Year
  Sex: Female

DRUGS (23)
  1. TRACLEER [Suspect]
     Indication: PULMONARY ARTERIAL HYPERTENSION
     Dosage: 125 MG, BID
     Route: 048
     Dates: start: 201304
  2. COUMADIN [Concomitant]
     Dosage: 1.5 MG, QD
     Route: 048
  3. METOLAZONE [Concomitant]
     Dosage: 2.5 MG, QD
     Route: 048
  4. STOOL SOFTENER [Concomitant]
     Dosage: 1 TAB AT BEDTIME
     Route: 048
  5. ECOTRIN [Concomitant]
     Dosage: 81 MG, QD
     Route: 048
     Dates: start: 20110114
  6. DIGOXIN [Concomitant]
     Dosage: 125 MCG, QD
     Route: 048
     Dates: start: 20110515
  7. IRON [Concomitant]
     Dosage: 18 MG, TID
     Route: 048
     Dates: start: 20111229
  8. ALBUTEROL [Concomitant]
     Indication: WHEEZING
     Dosage: 2.5MG/3ML Q4HRS PRN
     Route: 055
     Dates: start: 20120531
  9. BENZONATATE [Concomitant]
     Dosage: 200 MG, TID
     Route: 048
     Dates: start: 20130311
  10. VITAMIN D2 [Concomitant]
     Dosage: 50000 U, Q1WEEK
     Route: 048
     Dates: start: 20130320
  11. TIKOSYN [Concomitant]
     Dosage: 125 MCG, BID
     Route: 048
     Dates: start: 20130604
  12. KLOR-CON [Concomitant]
     Dosage: 20 MEQ, QD
     Route: 048
     Dates: start: 20130604
  13. KLOR-CON [Concomitant]
     Dosage: 8 MEQ, Q5H
     Route: 048
     Dates: start: 20131001
  14. SIMVASTATIN [Concomitant]
     Dosage: 40 MG, QPM
     Route: 048
     Dates: start: 20130627
  15. FERREX [Concomitant]
     Dosage: UNK, TID
     Route: 048
     Dates: start: 20130711
  16. CARVEDILOL [Concomitant]
     Dosage: 3.125 MG, BID
     Route: 048
     Dates: start: 20130815
  17. LEVOTHYROXINE [Concomitant]
     Dosage: 88 MCG, QD
     Route: 048
     Dates: start: 20131003
  18. ALLOPURINOL [Concomitant]
     Dosage: 200 MG, QD
     Route: 048
     Dates: start: 20131024
  19. NEXIUM [Concomitant]
     Dosage: 40 MG, QD
     Route: 048
     Dates: start: 20131113
  20. LASIX [Concomitant]
     Dosage: 40 MG, QD
     Route: 048
     Dates: start: 20131220
  21. LOSARTAN [Concomitant]
     Dosage: 50 MG, QD
     Dates: start: 20131220
  22. FIBERCON [Concomitant]
     Dosage: 625 MG, UNK
     Dates: start: 20131220
  23. CYCLOBENZAPRINE [Concomitant]
     Dosage: 5 MG, TID
     Dates: start: 20140103

REACTIONS (3)
  - Renal failure [Fatal]
  - Ocular vascular disorder [Not Recovered/Not Resolved]
  - Cerebrovascular accident [Not Recovered/Not Resolved]
